FAERS Safety Report 4970371-6 (Version None)
Quarter: 2006Q2

REPORT INFORMATION
  Report Type: 
  Country: None (occurrence: None)
  Receive Date: 20060412
  Receipt Date: 20060306
  Transmission Date: 20061013
  Serious: Yes (Hospitalization)
  Sender: FDA-Public Use
  Company Number: US-GLAXOSMITHKLINE-A0596323A

PATIENT
  Age: 50 Year
  Sex: Male

DRUGS (7)
  1. ARIXTRA [Suspect]
     Indication: THROMBOSIS PROPHYLAXIS
     Dosage: 2.5MG PER DAY
     Route: 058
     Dates: start: 20060227, end: 20060302
  2. LIPITOR [Concomitant]
  3. SINGULAIR [Concomitant]
  4. NASONEX [Concomitant]
  5. PERCOCET [Concomitant]
  6. REGLAN [Concomitant]
  7. IBUPROFEN [Concomitant]

REACTIONS (5)
  - CATHETER SITE DISCHARGE [None]
  - HAEMATOCRIT DECREASED [None]
  - HAEMOGLOBIN DECREASED [None]
  - INCISIONAL DRAINAGE [None]
  - UNEVALUABLE EVENT [None]
